FAERS Safety Report 7930506-X (Version None)
Quarter: 2011Q4

REPORT INFORMATION
  Report Type: 
  Country: None (occurrence: None)
  Receive Date: 20111117
  Receipt Date: 20111117
  Transmission Date: 20120403
  Serious: Yes (Death)
  Sender: FDA-Public Use
  Company Number: None

PATIENT
  Sex: Male
  Weight: 58.9676 kg

DRUGS (12)
  1. GLIPIZIDE [Concomitant]
  2. FUROSEMIDE [Concomitant]
  3. HYDROCODONE BITARTRATE AND ACETAMINOPHEN [Suspect]
  4. HYDROCODONE BITARTRATE AND ACETAMINOPHEN [Suspect]
  5. MORPHINE [Suspect]
  6. NITROSTAT [Suspect]
  7. SIMETHICONE [Suspect]
  8. SPIRONOLACTONE [Concomitant]
  9. NIZEDICAL XL [Suspect]
  10. PROCHLORPERAZINE [Suspect]
  11. LORAZEPAM [Suspect]
  12. OMEPRAZOLE [Suspect]

REACTIONS (1)
  - DEATH [None]
